FAERS Safety Report 6875169-X (Version None)
Quarter: 2010Q3

REPORT INFORMATION
  Report Type: 
  Country: None (occurrence: None)
  Receive Date: 20100727
  Receipt Date: 20100719
  Transmission Date: 20110219
  Serious: Yes (Other)
  Sender: FDA-Public Use
  Company Number: US-AMGEN-QUU424253

PATIENT
  Sex: Female

DRUGS (10)
  1. NPLATE [Suspect]
     Indication: IDIOPATHIC THROMBOCYTOPENIC PURPURA
     Route: 058
     Dates: start: 20090514
  2. PRAVASTATIN [Concomitant]
     Dates: start: 20100106
  3. METOPROLOL SUCCINATE [Concomitant]
     Dates: start: 20100106
  4. ASPIRIN [Concomitant]
     Dates: start: 20100106
  5. IMDUR [Concomitant]
     Dates: start: 20100106
  6. LOTENSIN [Concomitant]
     Dates: start: 20100106
  7. NITROGLYCERIN [Concomitant]
     Dates: start: 20100106
  8. VICODIN [Concomitant]
     Dates: start: 20100106
  9. PEPCID [Concomitant]
  10. TEMAZEPAM [Concomitant]

REACTIONS (1)
  - TRANSIENT ISCHAEMIC ATTACK [None]
